FAERS Safety Report 4871068-3 (Version None)
Quarter: 2005Q4

REPORT INFORMATION
  Report Type: 
  Country: None (occurrence: None)
  Receive Date: 20051229
  Receipt Date: 20051220
  Transmission Date: 20060501
  Serious: Yes (Hospitalization)
  Sender: FDA-Public Use
  Company Number: 200510564BYL

PATIENT
  Age: 28 Year
  Sex: Female
  Weight: 48 kg

DRUGS (4)
  1. CIPROFLOXACIN HYDROCHLORIDE [Suspect]
     Indication: ENTEROCOLITIS
     Dosage: 100 MG, TID, ORAL
     Route: 048
     Dates: start: 20050725, end: 20050728
  2. CLARITHROMYCIN [Concomitant]
  3. CEFSPAN [Concomitant]
  4. FLUMARK [Concomitant]

REACTIONS (3)
  - EOSINOPHIL COUNT INCREASED [None]
  - OEDEMA PERIPHERAL [None]
  - WHITE BLOOD CELL COUNT INCREASED [None]
